FAERS Safety Report 4708460-3 (Version None)
Quarter: 2005Q3

REPORT INFORMATION
  Report Type: 
  Country: None (occurrence: None)
  Receive Date: 20050706
  Receipt Date: 20050607
  Transmission Date: 20060218
  Serious: No
  Sender: FDA-Public Use
  Company Number: 200510494BCC

PATIENT
  Age: 58 Year
  Sex: Female
  Weight: 79.3795 kg

DRUGS (10)
  1. E.S. BAYER BACK + BODY PAIN [Suspect]
     Indication: ARTHRITIS
     Dosage: 1000/65 MG, QID, ORAL354L
     Route: 048
     Dates: end: 20050201
  2. E.S. BAYER BACK + BODY PAIN [Suspect]
     Dosage: 1000/65 MG, TID, ORAL; 500 MG, QD, ORAL
     Route: 048
     Dates: start: 20050202
  3. TOPAMAX [Suspect]
     Indication: WEIGHT CONTROL
  4. PROMETHAZINE [Concomitant]
  5. NORCO [Concomitant]
  6. KEFLEX [Concomitant]
  7. TRAZODONE [Concomitant]
  8. NEURONTIN [Concomitant]
  9. THORAZINE [Concomitant]
  10. ABILIFY [Concomitant]

REACTIONS (5)
  - CONTUSION [None]
  - DECREASED APPETITE [None]
  - OFF LABEL USE [None]
  - WEIGHT DECREASED [None]
  - WEIGHT INCREASED [None]
